FAERS Safety Report 7093612-0 (Version None)
Quarter: 2010Q4

REPORT INFORMATION
  Report Type: 
  Country: None (occurrence: None)
  Receive Date: 20101110
  Receipt Date: 20091015
  Transmission Date: 20110411
  Serious: No
  Sender: FDA-Public Use
  Company Number: US-KINGPHARMUSA00001-K200901293

PATIENT
  Age: 69 Year
  Sex: Female
  Weight: 50.794 kg

DRUGS (3)
  1. FLECTOR [Suspect]
     Indication: TENDONITIS
     Dosage: 1 PATCH, SINGLE
     Route: 061
     Dates: start: 20091012, end: 20091012
  2. VITAMINS [Concomitant]
     Dosage: UNK
  3. CELEBREX [Concomitant]
     Dosage: 200 MG, QD

REACTIONS (1)
  - APPLICATION SITE RASH [None]
